FAERS Safety Report 5330475-5 (Version None)
Quarter: 2007Q2

REPORT INFORMATION
  Report Type: 
  Country: None (occurrence: None)
  Receive Date: 20070517
  Receipt Date: 20070507
  Transmission Date: 20071010
  Serious: Yes (Hospitalization)
  Sender: FDA-Public Use
  Company Number: CERZ-11613

PATIENT
  Age: 33 Year
  Sex: Male
  Weight: 53 kg

DRUGS (2)
  1. CEREZYME [Suspect]
     Indication: GAUCHER'S DISEASE
     Dosage: 2400 UNITS Q2WKS IV
     Route: 042
  2. ALENDRONIC ACID [Concomitant]

REACTIONS (8)
  - ACTIVATED PARTIAL THROMBOPLASTIN TIME ABNORMAL [None]
  - CEREBRAL HAEMATOMA [None]
  - CEREBRAL HAEMORRHAGE [None]
  - ECHOCARDIOGRAM ABNORMAL [None]
  - HYPERREFLEXIA [None]
  - LABORATORY TEST ABNORMAL [None]
  - PLATELET COUNT INCREASED [None]
  - PROTHROMBIN TIME ABNORMAL [None]
